FAERS Safety Report 17145297 (Version 1)
Quarter: 2019Q4

REPORT INFORMATION
  Report Type: Spontaneous
  Country: US (occurrence: US)
  Receive Date: 20191211
  Receipt Date: 20191211
  Transmission Date: 20200122
  Serious: No
  Sender: FDA-Public Use
  Company Number: None

PATIENT
  Age: 31 Year
  Sex: Female

DRUGS (4)
  1. MONTELUKAST [Concomitant]
     Active Substance: MONTELUKAST SODIUM
     Dates: start: 20190909
  2. HUMIRA [Suspect]
     Active Substance: ADALIMUMAB
     Indication: RHEUMATOID ARTHRITIS
     Dosage: ?          OTHER FREQUENCY:EVERY OTHER WEEK;?
     Route: 058
     Dates: start: 20190205
  3. ALEVE TAB 220MG [Concomitant]
     Dates: start: 20170929
  4. ESTARYLLA TAB 0.25-35 [Concomitant]
     Dates: start: 20191102

REACTIONS (1)
  - Drug specific antibody present [None]

NARRATIVE: CASE EVENT DATE: 20191211
